FAERS Safety Report 5916314-X (Version None)
Quarter: 2008Q4

REPORT INFORMATION
  Report Type: 
  Country: None (occurrence: None)
  Receive Date: 20081013
  Receipt Date: 20081008
  Transmission Date: 20090506
  Serious: Yes (Death)
  Sender: FDA-Public Use
  Company Number: PHEH2008US09018

PATIENT

DRUGS (1)
  1. FORADIL [Suspect]
     Dosage: UNK
     Dates: start: 20081006

REACTIONS (1)
  - RENAL FAILURE [None]
